FAERS Safety Report 7830857-3 (Version None)
Quarter: 2011Q4

REPORT INFORMATION
  Report Type: 
  Country: None (occurrence: None)
  Receive Date: 20111021
  Receipt Date: 20111020
  Transmission Date: 20120403
  Serious: Yes (Other)
  Sender: FDA-Public Use
  Company Number: US-PFIZER INC-2011253967

PATIENT
  Sex: Male
  Weight: 68.481 kg

DRUGS (2)
  1. DILANTIN [Suspect]
     Indication: GRAND MAL CONVULSION
     Dosage: 400 MG, DAILY
     Dates: start: 20110701
  2. DILANTIN [Suspect]
     Indication: PETIT MAL EPILEPSY

REACTIONS (2)
  - PAIN [None]
  - URINARY TRACT INFECTION [None]
